FAERS Safety Report 10957171 (Version 2)
Quarter: 2015Q2

REPORT INFORMATION
  Report Type: Spontaneous
  Country: US (occurrence: US)
  Receive Date: 20150326
  Receipt Date: 20150408
  Transmission Date: 20150821
  Serious: Yes (Hospitalization, Other)
  Sender: FDA-Public Use
  Company Number: US-GE HEALTHCARE MEDICAL DIAGNOSTICS-OMPQ-PR-1503S-0247

PATIENT
  Age: 47 Year
  Sex: Female
  Weight: 47.67 kg

DRUGS (2)
  1. OMNIPAQUE [Suspect]
     Active Substance: IOHEXOL
     Indication: DIAGNOSTIC PROCEDURE
  2. OMNIPAQUE [Suspect]
     Active Substance: IOHEXOL
     Indication: NEOPLASM MALIGNANT
     Dosage: DOSE NOT REPORTED
     Route: 042
     Dates: start: 20150221, end: 20150221

REACTIONS (6)
  - Necrosis [Unknown]
  - Intestinal ischaemia [Unknown]
  - Nausea [Recovered/Resolved]
  - Contrast media reaction [None]
  - Acute kidney injury [Recovered/Resolved]
  - Pain [Not Recovered/Not Resolved]

NARRATIVE: CASE EVENT DATE: 20150221
